FAERS Safety Report 7912788-3 (Version None)
Quarter: 2011Q4

REPORT INFORMATION
  Report Type: 
  Country: None (occurrence: None)
  Receive Date: 20111114
  Receipt Date: 20111102
  Transmission Date: 20120403
  Serious: Yes (Death, Hospitalization)
  Sender: FDA-Public Use
  Company Number: US-GLAXOSMITHKLINE-A0905572A

PATIENT
  Age: 52 Year
  Sex: Female

DRUGS (8)
  1. STARLIX [Concomitant]
  2. LIPITOR [Concomitant]
  3. INSULIN [Concomitant]
  4. PREVACID [Concomitant]
  5. AVANDIA [Suspect]
     Indication: DIABETES MELLITUS
     Dosage: 4MG PER DAY
     Route: 048
     Dates: start: 20030101, end: 20051228
  6. UNIRETIC [Concomitant]
  7. TARKA [Concomitant]
  8. REGLAN [Concomitant]

REACTIONS (5)
  - CARDIAC FAILURE CONGESTIVE [None]
  - DEATH [None]
  - MYOCARDIAL INFARCTION [None]
  - HYPERTENSION [None]
  - CEREBROVASCULAR ACCIDENT [None]
